FAERS Safety Report 15547781 (Version 3)
Quarter: 2018Q4

REPORT INFORMATION
  Report Type: Report from Study
  Country: US (occurrence: US)
  Receive Date: 20181024
  Receipt Date: 20181128
  Transmission Date: 20190205
  Serious: Yes (Hospitalization, Other)
  Sender: FDA-Public Use
  Company Number: US-SHIRE-US201839953

PATIENT
  Age: 64 Year
  Sex: Female

DRUGS (1)
  1. HUMAN NORMAL IMMUNOGLOBULIN; LIQUID [Suspect]
     Active Substance: HUMAN IMMUNOGLOBULIN G
     Indication: IMMUNODEFICIENCY COMMON VARIABLE
     Route: 042

REACTIONS (11)
  - Fatigue [Unknown]
  - Somnolence [Unknown]
  - Cerebral disorder [Unknown]
  - Seizure [Unknown]
  - Hyperglycaemia [Unknown]
  - Fine motor skill dysfunction [Unknown]
  - Cerebral disorder [Unknown]
  - Blood immunoglobulin G decreased [Unknown]
  - Blood sodium decreased [Unknown]
  - Psychotic disorder [Unknown]
  - Cerebrovascular accident [Recovered/Resolved]

NARRATIVE: CASE EVENT DATE: 20181001
